FAERS Safety Report 11210919 (Version 2)
Quarter: 2015Q2

REPORT INFORMATION
  Report Type: Spontaneous
  Country: US (occurrence: US)
  Receive Date: 20150623
  Receipt Date: 20150623
  Transmission Date: 20150821
  Serious: Yes (Hospitalization)
  Sender: FDA-Public Use
  Company Number: PHHY2015US072854

PATIENT
  Age: 65 Year
  Sex: Male

DRUGS (4)
  1. METFORMIN [Concomitant]
     Active Substance: METFORMIN HYDROCHLORIDE
     Indication: PRODUCT USED FOR UNKNOWN INDICATION
     Dosage: 500 MG, UNK
     Route: 065
  2. GLIBENCLAMIDE [Suspect]
     Active Substance: GLYBURIDE
     Indication: PRODUCT USED FOR UNKNOWN INDICATION
     Dosage: 5 MG,
     Route: 065
  3. NATEGLINIDE. [Suspect]
     Active Substance: NATEGLINIDE
     Indication: ACUTE KIDNEY INJURY
     Dosage: 120 MG, BID
     Route: 048
  4. TENOFOVIR [Concomitant]
     Active Substance: TENOFOVIR
     Indication: PRODUCT USED FOR UNKNOWN INDICATION
     Dosage: 300 MG, QD
     Route: 065

REACTIONS (6)
  - Renal failure [Recovered/Resolved]
  - Hemiparesis [Recovered/Resolved]
  - Toxicity to various agents [Unknown]
  - Mental status changes [Recovered/Resolved]
  - VIIth nerve paralysis [Recovered/Resolved]
  - Hypoglycaemia [Recovered/Resolved]
